FAERS Safety Report 11337527 (Version 1)
Quarter: 2015Q3

REPORT INFORMATION
  Report Type: Spontaneous
  Country: US (occurrence: US)
  Receive Date: 20150803
  Receipt Date: 20150803
  Transmission Date: 20151125
  Serious: No
  Sender: FDA-Public Use
  Company Number: US-ELI_LILLY_AND_COMPANY-US200809005185

PATIENT
  Sex: Male

DRUGS (3)
  1. HALDOL [Concomitant]
     Active Substance: HALOPERIDOL
  2. ZYPREXA [Suspect]
     Active Substance: OLANZAPINE
  3. RISPERDAL [Concomitant]
     Active Substance: RISPERIDONE

REACTIONS (9)
  - Cardiovascular disorder [Not Recovered/Not Resolved]
  - Nausea [Unknown]
  - Hallucination, auditory [Unknown]
  - Vomiting [Unknown]
  - Insomnia [Unknown]
  - Disturbance in attention [Unknown]
  - Drug ineffective [Unknown]
  - Feeling abnormal [Unknown]
  - Weight increased [Unknown]
